FAERS Safety Report 8296611-6 (Version None)
Quarter: 2012Q2

REPORT INFORMATION
  Report Type: 
  Country: None (occurrence: None)
  Receive Date: 20120418
  Receipt Date: 20120418
  Transmission Date: 20120825
  Serious: No
  Sender: FDA-Public Use
  Company Number: None

PATIENT
  Age: 79 Year
  Sex: Male
  Weight: 76.203 kg

DRUGS (1)
  1. SINEMET CR [Suspect]
     Indication: PARKINSON'S DISEASE
     Dosage: 1 1/2
     Route: 048
     Dates: start: 20120210, end: 20120416

REACTIONS (8)
  - DECREASED APPETITE [None]
  - FALL [None]
  - TREMOR [None]
  - DRUG INEFFECTIVE [None]
  - BLOOD PRESSURE FLUCTUATION [None]
  - PRODUCT QUALITY ISSUE [None]
  - NERVOUSNESS [None]
  - WEIGHT DECREASED [None]
